FAERS Safety Report 23836487 (Version 1)
Quarter: 2024Q2

REPORT INFORMATION
  Report Type: Spontaneous
  Country: US (occurrence: US)
  Receive Date: 20240509
  Receipt Date: 20240509
  Transmission Date: 20240716
  Serious: No
  Sender: FDA-Public Use
  Company Number: US-Rare Disease Therapeutics, Inc.-2156789

PATIENT
  Age: 36 Year
  Sex: Female

DRUGS (1)
  1. ANAVIP [Suspect]
     Active Substance: PIT VIPER (CROTALINAE) IMMUNE GLOBULIN ANTIVENIN (EQUINE)

REACTIONS (2)
  - Pruritus [Unknown]
  - Urticaria [Unknown]
